FAERS Safety Report 8348009-X (Version None)
Quarter: 2012Q2

REPORT INFORMATION
  Report Type: 
  Country: None (occurrence: None)
  Receive Date: 20120509
  Receipt Date: 20120426
  Transmission Date: 20120825
  Serious: Yes (Hospitalization)
  Sender: FDA-Public Use
  Company Number: US-ACTELION-A-NJ2012-59573

PATIENT

DRUGS (12)
  1. POTASSIUM CHLORIDE [Concomitant]
  2. FLUOXETINE [Concomitant]
  3. BUMEX [Concomitant]
  4. LEVOTHYROXINE SODIUM [Concomitant]
  5. TRACLEER [Suspect]
     Indication: PULMONARY ARTERIAL HYPERTENSION
     Dosage: 125 MG, BID
     Route: 048
     Dates: start: 20101116
  6. SILDENAFIL [Concomitant]
  7. REMODULIN [Concomitant]
  8. WARFARIN SODIUM [Concomitant]
  9. SPIRONOLACTONE [Concomitant]
  10. ABILIFY [Concomitant]
  11. DIGOXIN [Concomitant]
  12. SPIRIVA [Concomitant]

REACTIONS (12)
  - IRON DEFICIENCY ANAEMIA [None]
  - PLEURAL EFFUSION [None]
  - CHEST DISCOMFORT [None]
  - HEADACHE [None]
  - DEVICE DAMAGE [None]
  - STAPHYLOCOCCAL BACTERAEMIA [None]
  - HYPOXIA [None]
  - ATELECTASIS [None]
  - DEVICE RELATED INFECTION [None]
  - PACKED RED BLOOD CELL TRANSFUSION [None]
  - PYREXIA [None]
  - KLEBSIELLA BACTERAEMIA [None]
